FAERS Safety Report 5147088-0 (Version None)
Quarter: 2006Q4

REPORT INFORMATION
  Report Type: 
  Country: None (occurrence: None)
  Receive Date: 20061103
  Receipt Date: 20061019
  Transmission Date: 20070319
  Serious: Yes (Other)
  Sender: FDA-Public Use
  Company Number: PHBS2006SE16252

PATIENT

DRUGS (1)
  1. VISUDYNE [Suspect]

REACTIONS (1)
  - MYOCARDIAL INFARCTION [None]
